FAERS Safety Report 7509806-3 (Version None)
Quarter: 2011Q2

REPORT INFORMATION
  Report Type: 
  Country: None (occurrence: None)
  Receive Date: 20110527
  Receipt Date: 20110520
  Transmission Date: 20111010
  Serious: No
  Sender: FDA-Public Use
  Company Number: A0876811A

PATIENT
  Sex: Female

DRUGS (1)
  1. ACITRETIN [Suspect]
     Route: 048
     Dates: start: 20100201, end: 20100731

REACTIONS (3)
  - DRUG EXPOSURE DURING PREGNANCY [None]
  - LIVE BIRTH [None]
  - URINARY TRACT INFECTION [None]
